FAERS Safety Report 23233509 (Version 1)
Quarter: 2023Q4

REPORT INFORMATION
  Report Type: Spontaneous
  Country: IN (occurrence: IN)
  Receive Date: 20231128
  Receipt Date: 20231128
  Transmission Date: 20240110
  Serious: Yes (Life-Threatening, Other)
  Sender: FDA-Public Use
  Company Number: IN-MACLEODS PHARMACEUTICALS US LTD-MAC2023044444

PATIENT

DRUGS (1)
  1. LEVOFLOXACIN [Suspect]
     Active Substance: LEVOFLOXACIN
     Indication: Meningitis tuberculous
     Dosage: UNK
     Route: 065

REACTIONS (3)
  - Myasthenia gravis crisis [Recovering/Resolving]
  - Respiratory depression [Recovering/Resolving]
  - Myasthenia gravis [Recovering/Resolving]
